FAERS Safety Report 8041395-X (Version None)
Quarter: 2012Q1

REPORT INFORMATION
  Report Type: 
  Country: None (occurrence: None)
  Receive Date: 20120112
  Receipt Date: 20110708
  Transmission Date: 20120608
  Serious: Yes (Hospitalization)
  Sender: FDA-Public Use
  Company Number: US-ASTRAZENECA-2011SE41377

PATIENT
  Age: 22079 Day
  Sex: Male

DRUGS (1)
  1. IRESSA [Suspect]
     Indication: OESOPHAGEAL CARCINOMA
     Route: 048
     Dates: start: 20091116, end: 20091127

REACTIONS (5)
  - VOMITING [None]
  - DEHYDRATION [None]
  - NAUSEA [None]
  - RENAL FAILURE ACUTE [None]
  - BLOOD CREATININE INCREASED [None]
